FAERS Safety Report 14377355 (Version 1)
Quarter: 2018Q1

REPORT INFORMATION
  Report Type: Spontaneous
  Country: US (occurrence: US)
  Receive Date: 20180111
  Receipt Date: 20180111
  Transmission Date: 20180509
  Serious: No
  Sender: FDA-Public Use
  Company Number: US-DRREDDYS-USA/USA/16/0085653

PATIENT
  Age: 45 Year
  Sex: Female
  Weight: 54 kg

DRUGS (3)
  1. SUBOXONE [Concomitant]
     Active Substance: BUPRENORPHINE HYDROCHLORIDE\NALOXONE HYDROCHLORIDE
     Indication: PRODUCT USED FOR UNKNOWN INDICATION
     Route: 065
  2. NICOTINE. [Suspect]
     Active Substance: NICOTINE
     Indication: SMOKING CESSATION THERAPY
     Route: 061
     Dates: start: 20161212
  3. NICOTINE. [Suspect]
     Active Substance: NICOTINE

REACTIONS (14)
  - Heart rate irregular [Not Recovered/Not Resolved]
  - Headache [Not Recovered/Not Resolved]
  - Treatment noncompliance [Unknown]
  - Anger [Not Recovered/Not Resolved]
  - Irritability [Not Recovered/Not Resolved]
  - Nightmare [Not Recovered/Not Resolved]
  - Depression [Not Recovered/Not Resolved]
  - Product quality issue [Unknown]
  - Chest discomfort [Not Recovered/Not Resolved]
  - Decreased appetite [Not Recovered/Not Resolved]
  - Overdose [Unknown]
  - Anxiety [Not Recovered/Not Resolved]
  - Crying [Not Recovered/Not Resolved]
  - Drug ineffective [Unknown]
